FAERS Safety Report 4477388-9 (Version None)
Quarter: 2004Q3

REPORT INFORMATION
  Report Type: 
  Country: None (occurrence: None)
  Receive Date: 20040923
  Receipt Date: 20040726
  Transmission Date: 20050211
  Serious: No
  Sender: FDA-Public Use
  Company Number: USA040773550

PATIENT
  Age: 53 Year
  Sex: Female
  Weight: 118 kg

DRUGS (4)
  1. FORTEO [Suspect]
     Indication: OSTEOPOROSIS
     Dosage: 20 UG/1 DAY
     Dates: start: 20040707
  2. HUMALOG [Suspect]
     Indication: DIABETES MELLITUS
     Dosage: 30 U/3 DAY
     Dates: start: 20031101
  3. INSULIN [Suspect]
     Indication: DIABETES MELLITUS
  4. LANTUS [Concomitant]

REACTIONS (2)
  - INJECTION SITE HAEMORRHAGE [None]
  - OSTEOPOROSIS [None]
